FAERS Safety Report 6424598-7 (Version None)
Quarter: 2009Q4

REPORT INFORMATION
  Report Type: 
  Country: None (occurrence: None)
  Receive Date: 20091103
  Receipt Date: 20091021
  Transmission Date: 20100525
  Serious: Yes (Other)
  Sender: FDA-Public Use
  Company Number: PHHY2009DE46171

PATIENT

DRUGS (1)
  1. ZOMETA [Suspect]
     Dosage: 4 MG EVERY 6 MONTHS

REACTIONS (2)
  - MEGACOLON [None]
  - PERITONITIS [None]
